FAERS Safety Report 8162064-1 (Version None)
Quarter: 2012Q1

REPORT INFORMATION
  Report Type: 
  Country: None (occurrence: None)
  Receive Date: 20120224
  Receipt Date: 20110727
  Transmission Date: 20120608
  Serious: No
  Sender: FDA-Public Use
  Company Number: US-BRISTOL-MYERS SQUIBB COMPANY-15835408

PATIENT
  Age: 39 Year
  Sex: Female

DRUGS (1)
  1. METFORMIN HCL [Suspect]
     Indication: TYPE 2 DIABETES MELLITUS
     Dosage: 6JAN 2011-INCREASED TO 1000MG BID .INTER ON FEB2011 FOR 2 WEEKS AND RESTARTED.250MG
     Route: 048
     Dates: start: 20101101

REACTIONS (8)
  - DRUG INTOLERANCE [None]
  - ABDOMINAL PAIN UPPER [None]
  - DRUG INEFFECTIVE [None]
  - DIZZINESS [None]
  - URTICARIA [None]
  - FLUSHING [None]
  - NAUSEA [None]
  - DIARRHOEA [None]
